FAERS Safety Report 18173547 (Version 3)
Quarter: 2020Q4

REPORT INFORMATION
  Report Type: Spontaneous
  Country: US (occurrence: US)
  Receive Date: 20200820
  Receipt Date: 20201016
  Transmission Date: 20210113
  Serious: No
  Sender: FDA-Public Use
  Company Number: US-ASTRAZENECA-2020SF01534

PATIENT
  Age: 25814 Day
  Sex: Female
  Weight: 71.2 kg

DRUGS (2)
  1. BYDUREON [Suspect]
     Active Substance: EXENATIDE
     Indication: HYPERSENSITIVITY
     Route: 058
  2. BYDUREON BCISE [Suspect]
     Active Substance: EXENATIDE
     Indication: NODULE
     Route: 058

REACTIONS (8)
  - Injection site haemorrhage [Unknown]
  - Sinus disorder [Unknown]
  - Needle issue [Unknown]
  - Device malfunction [Unknown]
  - Nasopharyngitis [Unknown]
  - Injection site extravasation [Unknown]
  - Weight decreased [Unknown]
  - Injection site nodule [Unknown]
